FAERS Safety Report 5199657-X (Version None)
Quarter: 2007Q1

REPORT INFORMATION
  Report Type: 
  Country: None (occurrence: None)
  Receive Date: 20070103
  Receipt Date: 20070103
  Transmission Date: 20070707
  Serious: Yes (Death)
  Sender: FDA-Public Use
  Company Number: None

PATIENT
  Age: 67 Year
  Sex: Male

DRUGS (1)
  1. AUGMENTIN '125' [Suspect]
     Indication: PAROTITIS
     Dosage: BID
     Dates: start: 20060612, end: 20060614

REACTIONS (7)
  - ASTHENIA [None]
  - CARDIO-RESPIRATORY ARREST [None]
  - CLOSTRIDIAL INFECTION [None]
  - DIARRHOEA [None]
  - ENTEROCOLITIS HAEMORRHAGIC [None]
  - SEPSIS [None]
  - VOMITING [None]
